FAERS Safety Report 6119767 (Version 11)
Quarter: 2013Q3

REPORT INFORMATION
  Report Type: Spontaneous
  Country: US (occurrence: US)
  Receive Date: 20060831
  Receipt Date: 20130717
  Transmission Date: 20140515
  Serious: Yes (Death, Hospitalization, Other)
  Sender: FDA-Public Use
  Company Number: PHEH2006US10835

PATIENT
  Age: 53 Year
  Sex: Female

DRUGS (26)
  1. ZOMETA [Suspect]
     Indication: METASTASES TO BONE
     Dosage: 4 MG MONTHLY
     Dates: start: 20040310, end: 20050516
  2. ZOMETA [Suspect]
     Dates: start: 200710
  3. DEXAMETHASONE [Concomitant]
     Indication: PROPHYLAXIS
     Dosage: 10 MG WEEKLY
     Dates: start: 20060605
  4. HERCEPTIN [Concomitant]
     Dosage: 168 MG WEEKLY
     Dates: start: 20050516
  5. TAXOTERE [Concomitant]
     Dosage: 47 MG WEEKLY
     Dates: start: 20060605, end: 20061113
  6. PERIDEX [Concomitant]
  7. XELODA [Concomitant]
  8. FEMARA [Concomitant]
     Dates: start: 20040218, end: 200502
  9. ZOLOFT (SERTRALINE HYDROCHLORIDE) [Concomitant]
  10. NAVELBINE ^ASTA MEDICA^ [Concomitant]
     Dates: start: 20050515, end: 200605
  11. TYKERB [Concomitant]
  12. ABRAXANE [Concomitant]
  13. ABRAXANE [Concomitant]
     Dates: end: 20090423
  14. OXYCONTIN [Concomitant]
  15. OXYCODONE [Concomitant]
  16. LANTUS [Concomitant]
  17. COUMADIN ^BOOTS^ [Concomitant]
  18. ZOLOFT (SERTRALINE HYDROCHLORIDE) [Concomitant]
  19. TAMOXIFEN [Concomitant]
  20. SERTRALINE [Concomitant]
  21. FASLODEX [Concomitant]
  22. NAVELBINE ^GLAXO WELLCOME^ [Concomitant]
  23. HERCEPTIN ^GENENTECH^ [Concomitant]
  24. VITAMIN C [Concomitant]
  25. CALCIUM [Concomitant]
  26. COMPAZINE [Concomitant]

REACTIONS (104)
  - Primary sequestrum [Recovering/Resolving]
  - Dental caries [Unknown]
  - Anaemia [Unknown]
  - Cushingoid [Unknown]
  - Diarrhoea [Unknown]
  - Decreased appetite [Unknown]
  - Weight decreased [Unknown]
  - Paraesthesia [Unknown]
  - Acetabulum fracture [Unknown]
  - Hydronephrosis [Unknown]
  - Atelectasis [Unknown]
  - Rib fracture [Unknown]
  - Spinal osteoarthritis [Unknown]
  - Joint effusion [Unknown]
  - Arthrofibrosis [Unknown]
  - Femoral neck fracture [Unknown]
  - Diabetes mellitus [Unknown]
  - Hyperglycaemia [Unknown]
  - Pain in extremity [Unknown]
  - Myalgia [Unknown]
  - Metastases to liver [Unknown]
  - Fall [Unknown]
  - Dyspnoea [Unknown]
  - Vocal cord paralysis [Unknown]
  - Anxiety [Unknown]
  - Depression [Not Recovered/Not Resolved]
  - Magnesium deficiency [Unknown]
  - Asthenia [Unknown]
  - Palpitations [Unknown]
  - Fatigue [Unknown]
  - Lethargy [Unknown]
  - Dry mouth [Unknown]
  - Hypercalcaemia [Unknown]
  - Nausea [Unknown]
  - Vomiting [Unknown]
  - Hypoaesthesia [Unknown]
  - Cardiac failure congestive [Unknown]
  - Aortic valve sclerosis [Unknown]
  - Osteoporosis [Unknown]
  - Actinomycosis [Unknown]
  - Tooth abscess [Unknown]
  - Oral pain [Unknown]
  - Stomatitis [Unknown]
  - Exostosis [Unknown]
  - Eye naevus [Unknown]
  - Cataract [Unknown]
  - Nail disorder [Unknown]
  - Hepatic steatosis [Unknown]
  - Oral infection [Unknown]
  - Periarthritis [Unknown]
  - Blood alkaline phosphatase increased [Not Recovered/Not Resolved]
  - Cough [Unknown]
  - Coccydynia [Unknown]
  - Left atrial dilatation [Unknown]
  - Aortic valve incompetence [Unknown]
  - Mitral valve incompetence [Unknown]
  - Tricuspid valve incompetence [Unknown]
  - Head injury [Unknown]
  - Pneumothorax [Unknown]
  - Aspiration [Unknown]
  - Decubitus ulcer [Unknown]
  - Hypercoagulation [Unknown]
  - Myopathy [Unknown]
  - Intervertebral disc space narrowing [Unknown]
  - Oedema peripheral [Unknown]
  - Glaucoma [Unknown]
  - Tachycardia [Unknown]
  - Splenomegaly [Unknown]
  - Pancreatic atrophy [Unknown]
  - Hydroureter [Unknown]
  - Pulmonary mass [Unknown]
  - Peroneal nerve palsy [Unknown]
  - Constipation [Unknown]
  - Dizziness [Unknown]
  - Osteonecrosis [Unknown]
  - Dehydration [Unknown]
  - Pneumothorax [Unknown]
  - Subcutaneous emphysema [Unknown]
  - Obstructive airways disorder [Unknown]
  - Malignant neoplasm progression [Fatal]
  - Pathological fracture [Unknown]
  - Pleural effusion [Unknown]
  - Lung infiltration [Unknown]
  - Neuropathy peripheral [Unknown]
  - Urinary tract infection [Unknown]
  - Abdominal pain [Unknown]
  - Pyrexia [Unknown]
  - Tremor [Unknown]
  - Chills [Unknown]
  - Metastases to bone [Unknown]
  - Carbohydrate antigen 15-3 increased [Unknown]
  - Metastases to spine [Unknown]
  - Compression fracture [Unknown]
  - Back pain [Unknown]
  - Osteonecrosis of jaw [Unknown]
  - Gingival pain [Unknown]
  - Gingivitis [Not Recovered/Not Resolved]
  - Impaired healing [Unknown]
  - Bone disorder [Unknown]
  - Purulent discharge [Recovering/Resolving]
  - Bacterial infection [Recovered/Resolved]
  - Inflammation [Recovered/Resolved]
  - Oral disorder [Unknown]
  - Osteomyelitis [Unknown]
